FAERS Safety Report 11462479 (Version 1)
Quarter: 2015Q3

REPORT INFORMATION
  Report Type: Spontaneous
  Country: US (occurrence: US)
  Receive Date: 20150831
  Receipt Date: 20150831
  Transmission Date: 20151125
  Serious: No
  Sender: FDA-Public Use
  Company Number: US-ELI_LILLY_AND_COMPANY-US201011005714

PATIENT
  Sex: Female

DRUGS (2)
  1. CYMBALTA [Suspect]
     Active Substance: DULOXETINE HYDROCHLORIDE
     Indication: FIBROMYALGIA
     Dosage: 30 MG, DAILY (1/D)
     Dates: end: 20101118
  2. HYDROCHLOROTHIAZIDE. [Concomitant]
     Active Substance: HYDROCHLOROTHIAZIDE

REACTIONS (9)
  - Cold sweat [Unknown]
  - Myalgia [Unknown]
  - Headache [Unknown]
  - Memory impairment [Unknown]
  - Malaise [Unknown]
  - Dizziness [Unknown]
  - Disturbance in attention [Unknown]
  - Drug ineffective [Unknown]
  - Feeling abnormal [Unknown]
